FAERS Safety Report 22907536 (Version 6)
Quarter: 2023Q4

REPORT INFORMATION
  Report Type: Spontaneous
  Country: CA (occurrence: CA)
  Receive Date: 20230905
  Receipt Date: 20231211
  Transmission Date: 20240110
  Serious: Yes (Hospitalization, Other)
  Sender: FDA-Public Use
  Company Number: CA-PFIZER INC-202201033079

PATIENT
  Age: 45 Year
  Sex: Female

DRUGS (7)
  1. RUXIENCE [Suspect]
     Active Substance: RITUXIMAB-PVVR
     Indication: Rheumatoid arthritis
     Dosage: 1000 MG, (DAY 1 AND DAY 15)
     Route: 042
     Dates: start: 20220823
  2. RUXIENCE [Suspect]
     Active Substance: RITUXIMAB-PVVR
     Dosage: 1000 MG, (DAY 1 AND DAY 15)
     Route: 042
     Dates: start: 20220906
  3. RUXIENCE [Suspect]
     Active Substance: RITUXIMAB-PVVR
     Dosage: 1000 MG, (DAY 1 AND DAY 15)
     Route: 042
     Dates: start: 20230308, end: 20230327
  4. RUXIENCE [Suspect]
     Active Substance: RITUXIMAB-PVVR
     Dosage: 1000 MG, DAY 1 AND DAY 15
     Route: 042
     Dates: start: 20230913
  5. AMLODIPINE [Concomitant]
     Active Substance: AMLODIPINE BESYLATE
     Dosage: 10 MG, 1X/DAY
  6. PREDNISONE [Concomitant]
     Active Substance: PREDNISONE
     Dosage: 40 MG FREQUENCY: UNKNOWN
     Route: 065
     Dates: start: 20220621
  7. RAMIPRIL [Concomitant]
     Active Substance: RAMIPRIL
     Dosage: 10 MG, 1X/DAY
     Route: 065

REACTIONS (8)
  - Haematemesis [Unknown]
  - Impaired gastric emptying [Unknown]
  - Gastrointestinal haemorrhage [Unknown]
  - Condition aggravated [Unknown]
  - Ulcer [Unknown]
  - Pyrexia [Unknown]
  - Off label use [Unknown]
  - Intentional product use issue [Unknown]

NARRATIVE: CASE EVENT DATE: 20230101
